FAERS Safety Report 9372928 (Version 1)
Quarter: 2013Q2

REPORT INFORMATION
  Report Type: Spontaneous
  Country: US (occurrence: US)
  Receive Date: 20130627
  Receipt Date: 20130627
  Transmission Date: 20140414
  Serious: No
  Sender: FDA-Public Use
  Company Number: US-PFIZER INC-2013187855

PATIENT
  Sex: 0

DRUGS (1)
  1. CLINDAMYCIN PHOSPHATE [Suspect]
     Dosage: UNK, SINGLE
     Route: 061
     Dates: start: 201306, end: 201306

REACTIONS (3)
  - Poor quality drug administered [Unknown]
  - Intentional drug misuse [Unknown]
  - Product odour abnormal [Unknown]
